FAERS Safety Report 6860299-9 (Version None)
Quarter: 2010Q3

REPORT INFORMATION
  Report Type: 
  Country: None (occurrence: None)
  Receive Date: 20100720
  Receipt Date: 20100707
  Transmission Date: 20110219
  Serious: Yes (Other)
  Sender: FDA-Public Use
  Company Number: HU-ELI_LILLY_AND_COMPANY-HU201007002730

PATIENT
  Sex: Male
  Weight: 56 kg

DRUGS (2)
  1. GEMCITABINE HCL [Suspect]
     Indication: NON-SMALL CELL LUNG CANCER
     Dosage: 1971 MG, UNKNOWN
     Route: 065
     Dates: start: 20100427, end: 20100630
  2. CISPLATIN [Suspect]
     Indication: NON-SMALL CELL LUNG CANCER
     Dosage: 120 MG, UNKNOWN
     Route: 065
     Dates: start: 20100427, end: 20100630

REACTIONS (1)
  - HYPOMAGNESAEMIA [None]
